FAERS Safety Report 7885102-X (Version None)
Quarter: 2011Q4

REPORT INFORMATION
  Report Type: 
  Country: None (occurrence: None)
  Receive Date: 20111102
  Receipt Date: 20100629
  Transmission Date: 20120403
  Serious: No
  Sender: FDA-Public Use
  Company Number: US-BAYER-201026770NA

PATIENT

DRUGS (1)
  1. AVELOX [Suspect]

REACTIONS (3)
  - SKIN SWELLING [None]
  - HYPERSENSITIVITY [None]
  - PRURITUS [None]
